FAERS Safety Report 4429323-7 (Version None)
Quarter: 2004Q3

REPORT INFORMATION
  Report Type: 
  Country: None (occurrence: None)
  Receive Date: 20040818
  Receipt Date: 20040818
  Transmission Date: 20050211
  Serious: Yes (Hospitalization)
  Sender: FDA-Public Use
  Company Number: None

PATIENT
  Age: 38 Year
  Sex: Male
  Weight: 106 kg

DRUGS (2)
  1. IBUPROFEN [Suspect]
     Indication: ABDOMINAL PAIN
     Dosage: 9600 MG QD ORAL
     Route: 048
     Dates: start: 20031228, end: 20040102
  2. IBUPROFEN [Suspect]
     Indication: SELF-MEDICATION
     Dosage: 9600 MG QD ORAL
     Route: 048
     Dates: start: 20031228, end: 20040102

REACTIONS (7)
  - ALCOHOL USE [None]
  - GASTRITIS [None]
  - MARKEDLY REDUCED DIETARY INTAKE [None]
  - NAUSEA [None]
  - RENAL FAILURE ACUTE [None]
  - SELF-MEDICATION [None]
  - VOMITING [None]
